FAERS Safety Report 7859946-4 (Version None)
Quarter: 2011Q4

REPORT INFORMATION
  Report Type: 
  Country: None (occurrence: None)
  Receive Date: 20111026
  Receipt Date: 20111026
  Transmission Date: 20120403
  Serious: Yes (Hospitalization)
  Sender: FDA-Public Use
  Company Number: None

PATIENT
  Age: 78 Year
  Sex: Male
  Weight: 67.5 kg

DRUGS (2)
  1. LOVASTATIN [Suspect]
     Indication: HYPERLIPIDAEMIA
     Dosage: 80 MG EVERY DAY PO
     Route: 048
     Dates: start: 20041028, end: 20110125
  2. RANOLAZINE [Suspect]
     Indication: ANGINA PECTORIS
     Dosage: 500 MG BID PO
     Route: 048

REACTIONS (5)
  - DIZZINESS [None]
  - CONFUSIONAL STATE [None]
  - DELIRIUM [None]
  - MENTAL STATUS CHANGES [None]
  - HEPATIC ENZYME INCREASED [None]
